FAERS Safety Report 7571923-X (Version None)
Quarter: 2011Q2

REPORT INFORMATION
  Report Type: 
  Country: None (occurrence: None)
  Receive Date: 20110624
  Receipt Date: 20101210
  Transmission Date: 20111010
  Serious: No
  Sender: FDA-Public Use
  Company Number: A0899313A

PATIENT
  Age: 2 Year
  Sex: Male

DRUGS (1)
  1. VERAMYST [Suspect]
     Route: 045
     Dates: start: 20101201, end: 20101207

REACTIONS (3)
  - HYPERSENSITIVITY [None]
  - RASH [None]
  - URTICARIA [None]
